FAERS Safety Report 8967731 (Version 1)
Quarter: 2012Q4

REPORT INFORMATION
  Report Type: Spontaneous
  Country: US (occurrence: None)
  Receive Date: 20121213
  Receipt Date: 20121213
  Transmission Date: 20130627
  Serious: Yes (Life-Threatening)
  Sender: FDA-Public Use
  Company Number: None

PATIENT
  Age: 57 Year
  Sex: Female
  Weight: 58.97 kg

DRUGS (2)
  1. TYSABRI [Suspect]
     Indication: MULTIPLE SCLEROSIS
     Dosage: IV monthly
     Route: 042
     Dates: start: 20080801, end: 20090901
  2. COPAXONE [Suspect]
     Indication: MULTIPLE SCLEROSIS
     Dosage: subcutaneous, daily
     Route: 058
     Dates: start: 20100404, end: 20110101

REACTIONS (1)
  - Bladder transitional cell carcinoma recurrent [None]
